FAERS Safety Report 5211239-X (Version None)
Quarter: 2006Q4

REPORT INFORMATION
  Report Type: 
  Country: None (occurrence: None)
  Receive Date: 20061130
  Receipt Date: 20060424
  Transmission Date: 20070319
  Serious: Yes (Disabling, Other)
  Sender: FDA-Public Use
  Company Number: WAES 0604USA04176

PATIENT
  Age: 67 Year
  Sex: Female
  Weight: 46.2669 kg

DRUGS (7)
  1. FOSAMAX [Suspect]
     Indication: OSTEOPOROSIS
     Dosage: 70 MG/WKY/PO
     Route: 048
     Dates: start: 20010530, end: 20050701
  2. DARVON [Concomitant]
  3. SOMA [Concomitant]
  4. SYNTHROID [Concomitant]
  5. TOPAMAX [Concomitant]
  6. VASOTEC [Concomitant]
  7. HYDROCHLOROTHIAZIDE [Concomitant]

REACTIONS (1)
  - OSTEONECROSIS [None]
